FAERS Safety Report 7162816-0 (Version None)
Quarter: 2010Q4

REPORT INFORMATION
  Report Type: 
  Country: None (occurrence: None)
  Receive Date: 20101215
  Receipt Date: 20091217
  Transmission Date: 20110411
  Serious: Yes (Death, Hospitalization)
  Sender: FDA-Public Use
  Company Number: US-PFIZER INC-2009234026

PATIENT
  Sex: Female

DRUGS (10)
  1. LYRICA [Suspect]
     Indication: NEUROPATHY PERIPHERAL
     Dosage: 200 MG, 2X/DAY
     Route: 048
  2. LYRICA [Suspect]
     Indication: CONVULSION
  3. NORVASC [Concomitant]
     Dosage: UNK
  4. KLOR-CON [Concomitant]
     Dosage: UNK
  5. SEROQUEL [Concomitant]
     Dosage: UNK
  6. DEPAKOTE [Concomitant]
     Dosage: UNK
  7. PREVACID [Concomitant]
     Dosage: UNK
  8. LANTUS [Concomitant]
     Dosage: UNK
  9. NOVOLOG [Concomitant]
     Dosage: UNK
  10. LOPRESSOR [Concomitant]
     Dosage: UNK

REACTIONS (2)
  - DEATH [None]
  - NERVOUS SYSTEM DISORDER [None]
